FAERS Safety Report 9381961 (Version 1)
Quarter: 2013Q3

REPORT INFORMATION
  Report Type: Spontaneous
  Country: US (occurrence: US)
  Receive Date: 20130703
  Receipt Date: 20130703
  Transmission Date: 20140515
  Serious: No
  Sender: FDA-Public Use
  Company Number: US-ROXANE LABORATORIES, INC.-2013-RO-01089RO

PATIENT
  Age: 65 Year
  Sex: Female

DRUGS (1)
  1. PREDNISONE [Suspect]
     Indication: IDIOPATHIC PULMONARY FIBROSIS
     Dosage: 50 MG
     Route: 048
     Dates: start: 20110815, end: 20130604

REACTIONS (1)
  - Weight increased [Unknown]
